FAERS Safety Report 15763164 (Version 2)
Quarter: 2019Q1

REPORT INFORMATION
  Report Type: Spontaneous
  Country: GB (occurrence: GB)
  Receive Date: 20181226
  Receipt Date: 20190114
  Transmission Date: 20190417
  Serious: Yes (Life-Threatening, Hospitalization, Other)
  Sender: FDA-Public Use
  Company Number: GB-BAXTER-2018BAX030722

PATIENT
  Age: 50 Year
  Sex: Female

DRUGS (2)
  1. BUPIVACAINE-CLARIS 5MG/ML SOLUTION FOR INJECTION [Suspect]
     Active Substance: BUPIVACAINE HYDROCHLORIDE
     Indication: PRODUCT USED FOR UNKNOWN INDICATION
     Dosage: UNK
     Route: 065
     Dates: start: 201805
  2. DEPO-MEDRONE [Suspect]
     Active Substance: METHYLPREDNISOLONE
     Indication: PRODUCT USED FOR UNKNOWN INDICATION
     Dosage: 40 MG/ML, SINGLE
     Route: 065
     Dates: start: 201805

REACTIONS (11)
  - Suicidal ideation [Unknown]
  - Cataract [Unknown]
  - Flushing [Unknown]
  - Glaucoma [Unknown]
  - Weight decreased [Unknown]
  - Hair injury [Unknown]
  - Dry skin [Unknown]
  - Herpes virus infection [Unknown]
  - Eye pain [Unknown]
  - Abnormal behaviour [Unknown]
  - Swelling face [Unknown]
